FAERS Safety Report 10688400 (Version 6)
Quarter: 2015Q2

REPORT INFORMATION
  Report Type: Report from Study
  Country: US (occurrence: US)
  Receive Date: 20150102
  Receipt Date: 20150611
  Transmission Date: 20150821
  Serious: Yes (Life-Threatening, Hospitalization)
  Sender: FDA-Public Use
  Company Number: PHHO2014US017142

PATIENT
  Age: 33 Year
  Sex: Female
  Weight: 66.2 kg

DRUGS (11)
  1. BEVACIZUMAB [Concomitant]
     Active Substance: BEVACIZUMAB
     Indication: METASTATIC MALIGNANT MELANOMA
     Dosage: 622.7 MG, UNK
     Route: 042
     Dates: start: 20120303
  2. CALCIUM VITAMIN D [Concomitant]
     Active Substance: CALCIUM\VITAMIN D
     Indication: PRODUCT USED FOR UNKNOWN INDICATION
     Dosage: 1 DF, QD (1 TAB OF 500-200MG-UNIT)
     Route: 048
  3. AFINITOR [Suspect]
     Active Substance: EVEROLIMUS
     Indication: METASTATIC MALIGNANT MELANOMA
     Dosage: 5 MG/DAY, QW
     Route: 048
     Dates: start: 20120303
  4. PACLITAXEL. [Concomitant]
     Active Substance: PACLITAXEL
     Dosage: 40 MG/M2, QD
     Route: 065
     Dates: start: 20141209
  5. CARBOPLATIN. [Concomitant]
     Active Substance: CARBOPLATIN
     Dosage: AUC 3
     Route: 065
     Dates: start: 20141209
  6. CARBOPLATIN. [Concomitant]
     Active Substance: CARBOPLATIN
     Indication: METASTATIC MALIGNANT MELANOMA
     Dosage: UNK
     Route: 042
  7. PACLITAXEL. [Concomitant]
     Active Substance: PACLITAXEL
     Indication: METASTATIC MALIGNANT MELANOMA
     Dosage: UNK
     Route: 042
  8. MULTI VITAMIN [Concomitant]
     Active Substance: VITAMINS
     Indication: PRODUCT USED FOR UNKNOWN INDICATION
     Dosage: 1 DF, QD (1 TABLET)
     Route: 048
  9. SPIRONOLACTONE. [Concomitant]
     Active Substance: SPIRONOLACTONE
     Indication: PRODUCT USED FOR UNKNOWN INDICATION
     Dosage: 50 MG, QD
     Route: 048
  10. LISINOPRIL. [Concomitant]
     Active Substance: LISINOPRIL
     Indication: PRODUCT USED FOR UNKNOWN INDICATION
     Dosage: 20 MG, QD
     Route: 048
  11. VITAMIN B12 [Concomitant]
     Active Substance: CYANOCOBALAMIN
     Indication: PRODUCT USED FOR UNKNOWN INDICATION
     Dosage: 1000 UG, QD
     Route: 048

REACTIONS (4)
  - Gastrointestinal disorder [Recovered/Resolved with Sequelae]
  - Pneumothorax [Recovered/Resolved]
  - Neutrophil count decreased [Recovered/Resolved]
  - Neutropenic sepsis [Recovered/Resolved]

NARRATIVE: CASE EVENT DATE: 20141208
